FAERS Safety Report 9542058 (Version 2)
Quarter: 2014Q1

REPORT INFORMATION
  Report Type: Spontaneous
  Country: US (occurrence: None)
  Receive Date: 20130524
  Receipt Date: 20130724
  Transmission Date: 20141002
  Serious: No
  Sender: FDA-Public Use
  Company Number: PHEH2013US001413

PATIENT
  Sex: Female

DRUGS (4)
  1. GILENYA [Suspect]
     Indication: RELAPSING-REMITTING MULTIPLE SCLEROSIS
     Route: 048
     Dates: start: 201212, end: 201301
  2. CELEXA (CITALOPRAM HYDROBROMIDE) [Concomitant]
  3. TOPIRAMATE [Concomitant]
  4. TRAZODONE [Concomitant]

REACTIONS (2)
  - Palpitations [None]
  - Anxiety [None]
